FAERS Safety Report 4853804-5 (Version None)
Quarter: 2005Q4

REPORT INFORMATION
  Report Type: 
  Country: None (occurrence: None)
  Receive Date: 20051213
  Receipt Date: 20051130
  Transmission Date: 20060501
  Serious: Yes (Other)
  Sender: FDA-Public Use
  Company Number: US-2005-025304

PATIENT
  Age: 40 Year
  Sex: Female

DRUGS (1)
  1. BETASERON [Suspect]
     Indication: MULTIPLE SCLEROSIS
     Dosage: 8 MIU, EVERY 2D, SUBCUTANEOUS
     Route: 058
     Dates: start: 20050628

REACTIONS (8)
  - BLEPHAROSPASM [None]
  - CLUMSINESS [None]
  - CONVULSION [None]
  - DISTURBANCE IN ATTENTION [None]
  - EYE MOVEMENT DISORDER [None]
  - MUSCLE TWITCHING [None]
  - TREMOR [None]
  - VISION BLURRED [None]
